FAERS Safety Report 8694436 (Version 3)
Quarter: 2014Q2

REPORT INFORMATION
  Report Type: Report from Study
  Country: GB (occurrence: GB)
  Receive Date: 20120731
  Receipt Date: 20140407
  Transmission Date: 20141212
  Serious: Yes (Death)
  Sender: FDA-Public Use
  Company Number: GB-ROCHE-1093953

PATIENT
  Age: 87 Year
  Sex: Male
  Weight: 69.96 kg

DRUGS (4)
  1. RANIBIZUMAB [Suspect]
     Indication: AGE-RELATED MACULAR DEGENERATION
     Route: 050
     Dates: start: 20120524, end: 20120621
  2. LEVOTHYROXINE [Concomitant]
     Route: 065
     Dates: end: 20120207
  3. VENTOLIN [Concomitant]
     Route: 065
     Dates: end: 20120207
  4. BUDESONIDE [Concomitant]
     Route: 065
     Dates: end: 20120207

REACTIONS (2)
  - Myocardial infarction [Fatal]
  - Coronary artery thrombosis [Fatal]
